FAERS Safety Report 18130844 (Version 1)
Quarter: 2020Q3

REPORT INFORMATION
  Report Type: Report from Study
  Country: US (occurrence: US)
  Receive Date: 20200810
  Receipt Date: 20200810
  Transmission Date: 20201103
  Serious: Yes (Hospitalization)
  Sender: FDA-Public Use
  Company Number: US-EXELIXIS-CABO-20030483

PATIENT
  Age: 55 Year
  Sex: Female

DRUGS (7)
  1. ONDANSETRON [Concomitant]
     Active Substance: ONDANSETRON
  2. NAPROXEN. [Concomitant]
     Active Substance: NAPROXEN
  3. CABOMETYX [Suspect]
     Active Substance: CABOZANTINIB S-MALATE
     Dosage: 40 MG, QD
     Route: 048
  4. METOPROLOL SUCCINATE. [Concomitant]
     Active Substance: METOPROLOL SUCCINATE
  5. CABOMETYX [Suspect]
     Active Substance: CABOZANTINIB S-MALATE
     Indication: PRODUCT USED FOR UNKNOWN INDICATION
     Dosage: 40 MG, QD
     Route: 048
     Dates: start: 20200422
  6. HYDROCODONE BITARTRATE AND ACETAMINOPHEN [Concomitant]
     Active Substance: ACETAMINOPHEN\HYDROCODONE BITARTRATE
  7. CEFDINIR. [Concomitant]
     Active Substance: CEFDINIR

REACTIONS (7)
  - Abdominal pain [Unknown]
  - Product dose omission issue [Unknown]
  - Chest pain [Unknown]
  - Diarrhoea [Unknown]
  - Nausea [Unknown]
  - Rash [Unknown]
  - Vomiting [Unknown]

NARRATIVE: CASE EVENT DATE: 20200625
